FAERS Safety Report 6816705 (Version 2)
Quarter: 2020Q3

REPORT INFORMATION
  Report Type: Report from Study
  Country: US (occurrence: US)
  Receive Date: 20081120
  Receipt Date: 20081217
  Transmission Date: 20201105
  Serious: Yes (Other)
  Sender: FDA-Public Use
  Company Number: US-ROCHE-596912

PATIENT
  Age: 69 Year
  Sex: Female

DRUGS (5)
  1. CITRICIDAL [Concomitant]
  2. .ALPHA.?TOCOPHEROL\ACACIA\CALCIUM LACTATE\CALCIUM STEARATE\LIVER EXTRACT [Concomitant]
     Dosage: DIETARY SUPPLEMENTS
  3. LEVOTHYROXINE. [Concomitant]
     Active Substance: LEVOTHYROXINE
  4. MECLIZINE HYDROCHLORIDE. [Concomitant]
     Active Substance: MECLIZINE HYDROCHLORIDE
  5. IBANDRONIC ACID. [Suspect]
     Active Substance: IBANDRONIC ACID
     Indication: OSTEOPOROSIS
     Route: 065
     Dates: start: 20080615

REACTIONS (3)
  - Asthma [Recovered/Resolved]
  - Diarrhoea [Recovered/Resolved]
  - Bronchitis [Recovered/Resolved]

NARRATIVE: CASE EVENT DATE: 20080701
